FAERS Safety Report 12720437 (Version 3)
Quarter: 2016Q3

REPORT INFORMATION
  Report Type: Spontaneous
  Country: FR (occurrence: FR)
  Receive Date: 20160907
  Receipt Date: 20160912
  Transmission Date: 20161109
  Serious: Yes (Other)
  Sender: FDA-Public Use
  Company Number: FR-ABBVIE-16K-056-1718502-00

PATIENT
  Sex: Female

DRUGS (1)
  1. HUMIRA [Suspect]
     Active Substance: ADALIMUMAB
     Indication: CROHN^S DISEASE
     Route: 058
     Dates: start: 201607

REACTIONS (8)
  - Fatigue [Unknown]
  - Mouth ulceration [Unknown]
  - Injection site erythema [Recovered/Resolved]
  - Vomiting [Unknown]
  - Incorrect dose administered [Unknown]
  - Alopecia [Unknown]
  - Pruritus [Unknown]
  - Device issue [Unknown]

NARRATIVE: CASE EVENT DATE: 2016
